FAERS Safety Report 9251583 (Version 1)
Quarter: 2013Q2

REPORT INFORMATION
  Report Type: Spontaneous
  Country: FR (occurrence: FR)
  Receive Date: 20130424
  Receipt Date: 20130424
  Transmission Date: 20140414
  Serious: Yes (Life-Threatening, Hospitalization)
  Sender: FDA-Public Use
  Company Number: FR-BRISTOL-MYERS SQUIBB COMPANY-18798504

PATIENT
  Age: 82 Year
  Sex: Female

DRUGS (7)
  1. COUMADINE [Suspect]
     Indication: ATRIAL FIBRILLATION
     Dosage: ALSO AS CONMED 1 TO 2 TABS DEPENDING ON INR
     Route: 048
     Dates: end: 20121120
  2. KARDEGIC [Suspect]
     Dosage: POWDER FOR ORAL SOLUTION IN SACHET-DOSE
     Route: 048
     Dates: end: 20121120
  3. COVERSYL [Concomitant]
     Dosage: 1DF= 2.5-UNITS NOS
  4. PRAVASTATINE [Concomitant]
     Dosage: 1DF= 40-UNITS NOS
  5. SOTALOL [Concomitant]
  6. SERESTA [Concomitant]
  7. FLUOXETINE [Concomitant]

REACTIONS (3)
  - Gastrointestinal haemorrhage [Recovered/Resolved]
  - Shock haemorrhagic [Recovered/Resolved]
  - Foot fracture [Recovered/Resolved]
